FAERS Safety Report 8190829-9 (Version None)
Quarter: 2012Q1

REPORT INFORMATION
  Report Type: 
  Country: None (occurrence: None)
  Receive Date: 20120307
  Receipt Date: 20120221
  Transmission Date: 20120608
  Serious: Yes (Other)
  Sender: FDA-Public Use
  Company Number: FR-ALEXION PHARMACEUTICALS INC.-A201200076

PATIENT
  Sex: Female

DRUGS (2)
  1. ACE INHIBITOR NOS [Concomitant]
     Dosage: UNK
  2. SOLIRIS [Suspect]
     Indication: HAEMOLYTIC URAEMIC SYNDROME
     Dosage: 600 MG, UNK
     Route: 042
     Dates: start: 20110101, end: 20120103

REACTIONS (8)
  - HYPERSENSITIVITY [None]
  - INSOMNIA [None]
  - INFUSION RELATED REACTION [None]
  - COUGH [None]
  - OXYGEN SATURATION DECREASED [None]
  - HALLUCINATION [None]
  - DYSPHAGIA [None]
  - NAUSEA [None]
